FAERS Safety Report 18682118 (Version 1)
Quarter: 2020Q4

REPORT INFORMATION
  Report Type: Spontaneous
  Country: US (occurrence: US)
  Receive Date: 20201229
  Receipt Date: 20201229
  Transmission Date: 20210114
  Serious: No
  Sender: FDA-Public Use
  Company Number: None

PATIENT
  Age: 75 Year
  Sex: Female

DRUGS (1)
  1. AMLODIPINE BESYLATE/BENAZEPRIL HCL CAP 5-250 [Suspect]
     Active Substance: AMLODIPINE BESYLATE\BENAZEPRIL HYDROCHLORIDE
     Dosage: ?          QUANTITY:1 TABLET(S);?
     Route: 048
     Dates: start: 20201221

REACTIONS (3)
  - Peripheral swelling [None]
  - Therapeutic product effect decreased [None]
  - Product substitution issue [None]

NARRATIVE: CASE EVENT DATE: 20201221
